FAERS Safety Report 8017841-4 (Version None)
Quarter: 2011Q4

REPORT INFORMATION
  Report Type: 
  Country: None (occurrence: None)
  Receive Date: 20111229
  Receipt Date: 20111229
  Transmission Date: 20120403
  Serious: Yes (Hospitalization)
  Sender: FDA-Public Use
  Company Number: None

PATIENT
  Age: 78 Year
  Sex: Male
  Weight: 105.8 kg

DRUGS (1)
  1. SERTRALINE HYDROCHLORIDE [Suspect]
     Dosage: 50 MG PO
     Route: 048
     Dates: start: 20111006, end: 20111020

REACTIONS (1)
  - SEROTONIN SYNDROME [None]
